FAERS Safety Report 15139010 (Version 2)
Quarter: 2018Q3

REPORT INFORMATION
  Report Type: Spontaneous
  Country: GB (occurrence: GB)
  Receive Date: 20180713
  Receipt Date: 20180818
  Transmission Date: 20181010
  Serious: Yes (Hospitalization, Other)
  Sender: FDA-Public Use
  Company Number: GB-AUROBINDO-AUR-APL-2018-035510

PATIENT
  Age: 76 Year
  Sex: Female
  Weight: 72.6 kg

DRUGS (34)
  1. METARAMINOL [Concomitant]
     Active Substance: METARAMINOL
     Indication: PRODUCT USED FOR UNKNOWN INDICATION
     Dosage: 0.5 MG, PRN
     Route: 042
     Dates: start: 20180313, end: 20180313
  2. PROPOFOL. [Concomitant]
     Active Substance: PROPOFOL
     Indication: SEDATION
  3. MORPHINE SULFATE. [Concomitant]
     Active Substance: MORPHINE SULFATE
     Indication: PRODUCT USED FOR UNKNOWN INDICATION
     Dosage: 0.5?2 MG (AS REQUIRED)
     Route: 042
     Dates: start: 20180312, end: 20180313
  4. MORPHINE SULFATE. [Concomitant]
     Active Substance: MORPHINE SULFATE
     Dosage: UNK
     Route: 042
     Dates: start: 20180313, end: 20180313
  5. DALTEPARIN [Concomitant]
     Active Substance: DALTEPARIN
     Indication: PRODUCT USED FOR UNKNOWN INDICATION
     Dosage: UNITS (UNKNOWN, 1 IN 1 DAY) ()
     Route: 058
     Dates: start: 20180312, end: 20180322
  6. VANCOMYCIN [Suspect]
     Active Substance: VANCOMYCIN
     Dosage: IN SODIUM CHLORIDE 0.9% 250 ML INFUSION (1000 MG, 1 IN 24 HOURS)
     Route: 065
     Dates: start: 20180314, end: 20180315
  7. PARACETAMOL [Concomitant]
     Active Substance: ACETAMINOPHEN
     Indication: PAIN
     Dosage: UNK (ONCE)
     Route: 042
     Dates: start: 20180312, end: 20180312
  8. IOHEXOL [Concomitant]
     Active Substance: IOHEXOL
     Indication: PRODUCT USED FOR UNKNOWN INDICATION
     Dosage: 70 ML, ONCE
     Route: 042
     Dates: start: 20180319, end: 20180319
  9. SODIUM LACTATE. [Concomitant]
     Active Substance: SODIUM LACTATE
     Dosage: 125 ML/HR CONTINUOUS INFUSION (125, ONCE) ()
     Route: 042
     Dates: start: 20180314, end: 20180314
  10. AMITRIPTYLINE [Concomitant]
     Active Substance: AMITRIPTYLINE
     Dosage: 50 MG, DAILY
     Route: 048
     Dates: start: 20180317, end: 20180328
  11. LISINOPRIL TABLET [Suspect]
     Active Substance: LISINOPRIL
     Dosage: 2.5 MILLIGRAM, DAILY
     Route: 048
     Dates: start: 20180326, end: 20180328
  12. LEVOBUPIVACAINE [Concomitant]
     Active Substance: LEVOBUPIVACAINE
     Indication: PRODUCT USED FOR UNKNOWN INDICATION
     Dosage: UNK, PRN ()
     Route: 065
     Dates: start: 20180313, end: 20180313
  13. MORPHINE [Concomitant]
     Active Substance: MORPHINE
     Indication: PRODUCT USED FOR UNKNOWN INDICATION
     Dosage: ()
     Route: 042
     Dates: start: 20180313, end: 20180313
  14. GENTAMICIN. [Suspect]
     Active Substance: GENTAMICIN
     Indication: PRODUCT USED FOR UNKNOWN INDICATION
     Dosage: 120 MG, PRN
     Route: 065
     Dates: start: 20180313, end: 20180313
  15. SODIUM CHLORIDE. [Concomitant]
     Active Substance: SODIUM CHLORIDE
     Indication: PRODUCT USED FOR UNKNOWN INDICATION
     Dosage: 1000 ML, ONCE
     Route: 042
     Dates: start: 20180317, end: 20180319
  16. SODIUM LACTATE. [Concomitant]
     Active Substance: SODIUM LACTATE
     Dosage: 100 ML/HR CONTINUOUS INFUSION (100, ONCE) ()
     Route: 042
     Dates: start: 20180313, end: 20180314
  17. CYCLIZINE [Concomitant]
     Active Substance: CYCLIZINE
     Indication: NAUSEA
     Dosage: 50 MG, PRN
     Route: 042
     Dates: start: 20180313, end: 20180314
  18. LISINOPRIL TABLET [Suspect]
     Active Substance: LISINOPRIL
     Indication: PRODUCT USED FOR UNKNOWN INDICATION
     Dosage: 10 MILLIGRAM, DAILY
     Route: 048
     Dates: start: 20180314, end: 20180326
  19. VANCOMYCIN [Suspect]
     Active Substance: VANCOMYCIN
     Indication: INFECTION
     Dosage: IN SODIUM CHLORIDE 0.9% 50 ML INFUSION (1000 MG, AS REQUIRED)
     Route: 065
     Dates: start: 20180313, end: 20180313
  20. PROPOFOL. [Concomitant]
     Active Substance: PROPOFOL
     Indication: INJURY
     Dosage: 10?30 MG, UNK
     Route: 042
     Dates: start: 20180312, end: 20180312
  21. PROPOFOL. [Concomitant]
     Active Substance: PROPOFOL
     Indication: INJURY
  22. TRANEXAMIC ACID. [Concomitant]
     Active Substance: TRANEXAMIC ACID
     Indication: PRODUCT USED FOR UNKNOWN INDICATION
     Dosage: 1 G, PRN
     Route: 065
     Dates: start: 20180313, end: 20180313
  23. PARACETAMOL [Concomitant]
     Active Substance: ACETAMINOPHEN
     Dosage: PARACETAMOL TABLET 1G OR INFUSION 1G (1 GRAM,4 IN 1 DAY) ()
     Route: 065
     Dates: start: 20180313, end: 20180328
  24. SODIUM LACTATE. [Concomitant]
     Active Substance: SODIUM LACTATE
     Indication: PRODUCT USED FOR UNKNOWN INDICATION
     Dosage: UNK
     Route: 042
     Dates: start: 20180312, end: 20180317
  25. AMITRIPTYLINE [Concomitant]
     Active Substance: AMITRIPTYLINE
     Indication: PRODUCT USED FOR UNKNOWN INDICATION
     Dosage: 50 MG, DAILY
     Route: 048
     Dates: start: 20180312, end: 20180313
  26. CYCLIZINE [Concomitant]
     Active Substance: CYCLIZINE
     Indication: VOMITING
  27. MACROGOL [Concomitant]
     Active Substance: POLYETHYLENE GLYCOLS
     Indication: PRODUCT USED FOR UNKNOWN INDICATION
     Dosage: 1 SACHET, BID
     Route: 048
     Dates: start: 20180313, end: 20180328
  28. LISINOPRIL TABLET [Suspect]
     Active Substance: LISINOPRIL
     Dosage: 2.5 MILLIGRAM, DAILY
     Route: 048
     Dates: start: 20180419, end: 20180419
  29. PENTHROX [Suspect]
     Active Substance: METHOXYFLURANE
     Indication: PAIN
     Dosage: 6?10 PUFFS 99.9% METHOXYFLURANE AT 18:30 AND AT 19:45 ()
     Route: 055
     Dates: start: 20180312, end: 20180312
  30. MORPHINE SULFATE. [Concomitant]
     Active Substance: MORPHINE SULFATE
     Indication: PAIN
     Dosage: 2.5?10 MG (AS REQUIRED)
     Route: 048
     Dates: start: 20180312, end: 20180315
  31. MORPHINE [Concomitant]
     Active Substance: MORPHINE
     Indication: PRODUCT USED FOR UNKNOWN INDICATION
  32. FENTANYL. [Concomitant]
     Active Substance: FENTANYL
     Indication: PRODUCT USED FOR UNKNOWN INDICATION
     Dosage: 25?50 MCG, PRN
     Route: 042
     Dates: start: 20180313, end: 20180313
  33. ANASTROZOLE. [Concomitant]
     Active Substance: ANASTROZOLE
     Indication: PRODUCT USED FOR UNKNOWN INDICATION
     Dosage: UNK, DAILY
     Route: 048
     Dates: start: 20180312, end: 20180328
  34. NALOXONE [Concomitant]
     Active Substance: NALOXONE
     Indication: PRODUCT USED FOR UNKNOWN INDICATION
     Dosage: 100 MCG, PRN
     Route: 042
     Dates: start: 20180313, end: 20180314

REACTIONS (2)
  - Acute kidney injury [Recovered/Resolved]
  - Pulmonary embolism [Recovering/Resolving]

NARRATIVE: CASE EVENT DATE: 20180314
